FAERS Safety Report 6371430-6 (Version None)
Quarter: 2009Q3

REPORT INFORMATION
  Report Type: 
  Country: None (occurrence: None)
  Receive Date: 20090923
  Receipt Date: 20080812
  Transmission Date: 20100115
  Serious: Yes (Other)
  Sender: FDA-Public Use
  Company Number: US-ASTRAZENECA-2007UW10889

PATIENT
  Age: 34 Year
  Sex: Male
  Weight: 90.7 kg

DRUGS (9)
  1. SEROQUEL [Suspect]
     Route: 048
     Dates: start: 20031008, end: 20070101
  2. ZYPREXA [Concomitant]
     Dates: start: 20030420, end: 20030517
  3. RISPERDAL [Concomitant]
     Dates: start: 20030420, end: 20030610
  4. GEODON [Concomitant]
  5. STELAZINE [Concomitant]
  6. THORAZINE [Concomitant]
  7. TRILAFON [Concomitant]
  8. HYDROXYZINE PAMOATE [Concomitant]
  9. HALDOL [Concomitant]

REACTIONS (3)
  - BLOOD CHOLESTEROL INCREASED [None]
  - DIABETES MELLITUS [None]
  - PANCREATITIS [None]
